FAERS Safety Report 25042646 (Version 1)
Quarter: 2025Q1

REPORT INFORMATION
  Report Type: Spontaneous
  Country: FR (occurrence: FR)
  Receive Date: 20250305
  Receipt Date: 20250305
  Transmission Date: 20250408
  Serious: Yes (Other)
  Sender: MYLAN
  Company Number: FR-JNJFOC-20250243390

PATIENT
  Age: 83 Year
  Sex: Male

DRUGS (12)
  1. DEXAMETHASONE [Suspect]
     Active Substance: DEXAMETHASONE
     Indication: Product used for unknown indication
  2. DEXAMETHASONE [Suspect]
     Active Substance: DEXAMETHASONE
     Route: 065
  3. DEXAMETHASONE [Suspect]
     Active Substance: DEXAMETHASONE
     Route: 065
  4. DEXAMETHASONE [Suspect]
     Active Substance: DEXAMETHASONE
  5. DARZALEX [Suspect]
     Active Substance: DARATUMUMAB
     Indication: Product used for unknown indication
  6. DARZALEX [Suspect]
     Active Substance: DARATUMUMAB
     Route: 065
  7. DARZALEX [Suspect]
     Active Substance: DARATUMUMAB
     Route: 065
  8. DARZALEX [Suspect]
     Active Substance: DARATUMUMAB
  9. VELCADE [Suspect]
     Active Substance: BORTEZOMIB
     Indication: Product used for unknown indication
  10. VELCADE [Suspect]
     Active Substance: BORTEZOMIB
     Route: 065
  11. VELCADE [Suspect]
     Active Substance: BORTEZOMIB
     Route: 065
  12. VELCADE [Suspect]
     Active Substance: BORTEZOMIB

REACTIONS (1)
  - Myocardial infarction [Unknown]
